FAERS Safety Report 5386529-0 (Version None)
Quarter: 2007Q3

REPORT INFORMATION
  Report Type: 
  Country: None (occurrence: None)
  Receive Date: 20070713
  Receipt Date: 20070706
  Transmission Date: 20080115
  Serious: Yes (Death, Hospitalization)
  Sender: FDA-Public Use
  Company Number: HQWYE926106JUL07

PATIENT
  Age: 50 Year
  Sex: Female

DRUGS (1)
  1. PANTECTA [Suspect]
     Route: 048
     Dates: start: 20070507, end: 20070507

REACTIONS (3)
  - DENGUE FEVER [None]
  - HEPATIC FAILURE [None]
  - RENAL FAILURE [None]
